FAERS Safety Report 5627677-7 (Version None)
Quarter: 2008Q1

REPORT INFORMATION
  Report Type: 
  Country: None (occurrence: None)
  Receive Date: 20080215
  Receipt Date: 20080205
  Transmission Date: 20080703
  Serious: Yes (Other)
  Sender: FDA-Public Use
  Company Number: US-BAYER-200713785BCC

PATIENT
  Age: 76 Year
  Sex: Female
  Weight: 73 kg

DRUGS (5)
  1. ALEVE [Suspect]
     Indication: PAIN
     Route: 048
     Dates: start: 20020101, end: 20070101
  2. WALMART ASPIRIN [Concomitant]
  3. LOVASTATIN [Concomitant]
  4. GEMISOLE [Concomitant]
  5. METOPROLOL TARTRATE [Concomitant]

REACTIONS (3)
  - GASTRIC HAEMORRHAGE [None]
  - HAEMATEMESIS [None]
  - HAEMATOCHEZIA [None]
